FAERS Safety Report 7609360-1 (Version None)
Quarter: 2011Q3

REPORT INFORMATION
  Report Type: 
  Country: None (occurrence: None)
  Receive Date: 20110714
  Receipt Date: 20110706
  Transmission Date: 20111222
  Serious: Yes (Other)
  Sender: FDA-Public Use
  Company Number: PHEH2007US15441

PATIENT
  Sex: Female

DRUGS (33)
  1. RADIATION THERAPY [Concomitant]
  2. FEMARA [Concomitant]
     Dosage: 2.5 MG, UNK
  3. PERIOGARD [Concomitant]
     Route: 049
  4. TRAMADOL HCL [Concomitant]
     Route: 048
  5. GABAPENTIN [Concomitant]
     Route: 048
  6. BEXTRA [Concomitant]
     Dosage: 20 MG, QD
     Route: 048
  7. AUGMENTIN - SLOW RELEASE [Concomitant]
     Dosage: 200 MG, BID
     Route: 048
  8. NORVASC [Concomitant]
     Dosage: 5 MG, QD
     Route: 048
  9. IBUPROFEN (ADVIL) [Concomitant]
  10. FENTANYL [Concomitant]
     Route: 062
  11. ZOCOR [Concomitant]
  12. ZOLADEX [Concomitant]
  13. GEMZAR [Concomitant]
  14. XELODA [Concomitant]
     Dosage: 100 MG, BID
     Route: 048
  15. CIPROFLOXACIN [Concomitant]
     Route: 048
  16. MORPHINE [Concomitant]
  17. AVASTIN [Concomitant]
  18. AMOXICILLIN [Concomitant]
     Dosage: 500 MG, TID
     Route: 048
  19. AZITHROMYCIN [Concomitant]
     Route: 048
  20. LEVAQUIN [Concomitant]
     Dosage: 500 MG, QD
     Route: 048
  21. PROCHLORPERAZINE TAB [Concomitant]
     Dosage: 10 MG, TID
     Route: 048
  22. ZOMETA [Suspect]
     Dosage: UNK
     Route: 042
  23. SYNTHROID [Concomitant]
     Dosage: 137 MG, QD
     Route: 048
  24. HYDROCODONE [Concomitant]
     Route: 048
  25. CHLORHEXIDINE DENTAL ^ACO^ [Concomitant]
     Route: 049
  26. PROMETHAZINE HCL AND CODEINE [Concomitant]
     Route: 048
  27. NEUPOGEN [Concomitant]
     Route: 030
  28. CELEBREX [Concomitant]
     Dosage: 200 MG, QD
     Route: 048
  29. ZESTRIL [Concomitant]
  30. TAMOXIFEN CITRATE [Concomitant]
  31. CHEMOTHERAPEUTICS NOS [Concomitant]
  32. CARDIZEM LA /OLD FORM/ [Concomitant]
     Dosage: 240 MG, QID
     Route: 048
  33. LORAZEPAM [Concomitant]
     Dosage: 0.5 MG, QHS
     Route: 048

REACTIONS (37)
  - ANXIETY [None]
  - ASCITES [None]
  - CERVICAL DYSPLASIA [None]
  - NECK PAIN [None]
  - SPINAL DISORDER [None]
  - INJURY [None]
  - BONE DISORDER [None]
  - SPINAL COMPRESSION FRACTURE [None]
  - SPINAL CORD INJURY [None]
  - KYPHOSIS [None]
  - OSTEONECROSIS OF JAW [None]
  - METASTASES TO BONE [None]
  - MUSCLE SPASMS [None]
  - PARONYCHIA [None]
  - HEPATIC STEATOSIS [None]
  - RESPIRATORY TRACT INFLAMMATION [None]
  - HYPOAESTHESIA ORAL [None]
  - POROKERATOSIS [None]
  - HYPOAESTHESIA [None]
  - ANHEDONIA [None]
  - BRONCHITIS [None]
  - ARTHROPATHY [None]
  - ANAEMIA [None]
  - BASAL CELL CARCINOMA [None]
  - NEOPLASM MALIGNANT [None]
  - OVARIAN CYST [None]
  - CHOLELITHIASIS [None]
  - IMPAIRED HEALING [None]
  - OVARIAN ENLARGEMENT [None]
  - PLEURAL EFFUSION [None]
  - SKIN PAPILLOMA [None]
  - PAIN [None]
  - TOOTH IMPACTED [None]
  - PARAESTHESIA ORAL [None]
  - METASTASES TO LIVER [None]
  - PNEUMONIA [None]
  - ROSACEA [None]
